FAERS Safety Report 5194929-7 (Version None)
Quarter: 2006Q4

REPORT INFORMATION
  Report Type: 
  Country: None (occurrence: None)
  Receive Date: 20061229
  Receipt Date: 20061006
  Transmission Date: 20070319
  Serious: No
  Sender: FDA-Public Use
  Company Number: US-BRISTOL-MYERS SQUIBB COMPANY-13533930

PATIENT
  Age: 86 Year
  Sex: Female
  Weight: 48 kg

DRUGS (13)
  1. SPRYCEL [Suspect]
     Indication: CHRONIC MYELOID LEUKAEMIA
     Route: 048
     Dates: start: 20060901
  2. KEPPRA [Concomitant]
  3. LAMICTAL [Concomitant]
  4. SYNTHROID [Concomitant]
  5. ARICEPT [Concomitant]
  6. GLEEVEC [Concomitant]
  7. AZMACORT [Concomitant]
  8. DETROL [Concomitant]
  9. EFFEXOR [Concomitant]
  10. COMBIVENT [Concomitant]
  11. DIOVAN [Concomitant]
  12. EPOGEN [Concomitant]
  13. LOMOTIL [Concomitant]

REACTIONS (8)
  - ANOREXIA [None]
  - ANXIETY [None]
  - DIARRHOEA [None]
  - DYSARTHRIA [None]
  - DYSPNOEA [None]
  - LETHARGY [None]
  - NAUSEA [None]
  - PERSONALITY CHANGE [None]
